FAERS Safety Report 6939228-5 (Version None)
Quarter: 2010Q3

REPORT INFORMATION
  Report Type: 
  Country: None (occurrence: None)
  Receive Date: 20100824
  Receipt Date: 20100803
  Transmission Date: 20110219
  Serious: Yes (Life-Threatening, Hospitalization)
  Sender: FDA-Public Use
  Company Number: US-BAYER-200939437NA

PATIENT
  Age: 37 Year
  Sex: Female
  Weight: 73 kg

DRUGS (15)
  1. YAZ [Suspect]
     Indication: CONTRACEPTION
     Dates: start: 20060801, end: 20080701
  2. YAZ [Suspect]
     Dates: start: 20070801, end: 20080810
  3. YASMIN [Suspect]
     Indication: CONTRACEPTION
     Route: 048
     Dates: start: 20060801, end: 20080701
  4. YASMIN [Suspect]
     Dates: start: 20070801, end: 20080810
  5. SLIMQUICK [Concomitant]
  6. FENUGREEK [Concomitant]
  7. LEVOXYL [Concomitant]
  8. JANUVIA [Concomitant]
     Route: 048
  9. METFORMIN [Concomitant]
  10. LIPITOR [Concomitant]
  11. SPIRONOLACTONE [Concomitant]
  12. SYNTHROID [Concomitant]
     Route: 048
  13. BIOTIN [Concomitant]
     Route: 048
  14. ZINC [Concomitant]
     Route: 048
  15. MOTRIN [Concomitant]
     Route: 048

REACTIONS (12)
  - ASTHENIA [None]
  - CEREBROVASCULAR ACCIDENT [None]
  - DIPLOPIA [None]
  - DIZZINESS [None]
  - EXTENSOR PLANTAR RESPONSE [None]
  - EYE PAIN [None]
  - FATIGUE [None]
  - HEMICEPHALALGIA [None]
  - HEMIPARESIS [None]
  - HYPOAESTHESIA FACIAL [None]
  - PAIN [None]
  - VISUAL IMPAIRMENT [None]
